FAERS Safety Report 24653503 (Version 4)
Quarter: 2025Q1

REPORT INFORMATION
  Report Type: Other
  Country: US (occurrence: US)
  Receive Date: 20241122
  Receipt Date: 20250124
  Transmission Date: 20250408
  Serious: No
  Sender: TRAVERE THERAPEUTICS
  Company Number: US-TRAVERE-2024TVT01173

PATIENT
  Sex: Female

DRUGS (2)
  1. FILSPARI [Suspect]
     Active Substance: SPARSENTAN
     Indication: IgA nephropathy
     Route: 048
  2. FILSPARI [Suspect]
     Active Substance: SPARSENTAN
     Dosage: 200 MG TABLET 2 TABLETS DAILY
     Route: 048

REACTIONS (4)
  - Blood cholesterol increased [Unknown]
  - Headache [Unknown]
  - Peripheral swelling [Unknown]
  - Abdominal distension [Unknown]
